FAERS Safety Report 8614377-4 (Version None)
Quarter: 2012Q3

REPORT INFORMATION
  Report Type: 
  Country: None (occurrence: None)
  Receive Date: 20120823
  Receipt Date: 20120821
  Transmission Date: 20120928
  Serious: Yes (Other)
  Sender: FDA-Public Use
  Company Number: CA-BAYER-2012-086015

PATIENT
  Age: 64 Year
  Sex: Female
  Weight: 61.224 kg

DRUGS (2)
  1. ACTONEL [Concomitant]
  2. CIPRO XR [Suspect]
     Dosage: 1000 MG, QD
     Route: 048

REACTIONS (2)
  - VENTRICULAR EXTRASYSTOLES [None]
  - TACHYARRHYTHMIA [None]
